FAERS Safety Report 4614725-6 (Version None)
Quarter: 2005Q2

REPORT INFORMATION
  Report Type: 
  Country: None (occurrence: None)
  Receive Date: 20050310
  Receipt Date: 20041115
  Transmission Date: 20051028
  Serious: Yes (Hospitalization)
  Sender: FDA-Public Use
  Company Number: A03200403860

PATIENT
  Age: 64 Year
  Sex: Male
  Weight: 86.1834 kg

DRUGS (11)
  1. ELOXATIN [Suspect]
     Indication: COLON CANCER
     Dosage: 260 MG Q2W - INTRAVENOUS NOS
     Route: 042
     Dates: start: 20041129, end: 20041129
  2. ELOXATIN [Suspect]
     Indication: METASTASES TO LIVER
     Dosage: 260 MG Q2W - INTRAVENOUS NOS
     Route: 042
     Dates: start: 20041129, end: 20041129
  3. ELOXATIN [Suspect]
     Indication: COLON CANCER
     Dosage: 260 MG Q3W - INTRAVENOUS NOS
     Route: 042
     Dates: start: 20041129, end: 20041129
  4. ELOXATIN [Suspect]
     Indication: METASTASES TO LIVER
     Dosage: 260 MG Q3W - INTRAVENOUS NOS
     Route: 042
     Dates: start: 20041129, end: 20041129
  5. ELOXATIN [Suspect]
     Indication: COLON CANCER
     Dosage: MG Q3W - INTRAVENOUS NOS
     Route: 042
     Dates: start: 20041214, end: 20041214
  6. ELOXATIN [Suspect]
     Indication: METASTASES TO LIVER
     Dosage: MG Q3W - INTRAVENOUS NOS
     Route: 042
     Dates: start: 20041214, end: 20041214
  7. DOLASETRON MESILATE [Concomitant]
  8. DEXAMETHASONE [Concomitant]
  9. BEVACIZUMAB [Concomitant]
  10. LEUCOVORIN CALCIUM [Concomitant]
  11. FLUOROURACIL [Concomitant]

REACTIONS (2)
  - MUSCLE TWITCHING [None]
  - PANCREATITIS [None]
